FAERS Safety Report 8794269 (Version 3)
Quarter: 2015Q2

REPORT INFORMATION
  Report Type: Report from Study
  Country: US (occurrence: US)
  Receive Date: 20120917
  Receipt Date: 20150406
  Transmission Date: 20150821
  Serious: Yes (Death)
  Sender: FDA-Public Use
  Company Number: US-ROCHE-1128731

PATIENT
  Sex: Female
  Weight: 55.2 kg

DRUGS (7)
  1. SALINE [Concomitant]
     Active Substance: SODIUM CHLORIDE
     Dosage: 25 CC
     Route: 065
  2. MESNA. [Concomitant]
     Active Substance: MESNA
  3. AVASTIN [Suspect]
     Active Substance: BEVACIZUMAB
     Indication: BONE CANCER
  4. IFOSFAMIDE. [Concomitant]
     Active Substance: IFOSFAMIDE
     Route: 065
  5. AVASTIN [Suspect]
     Active Substance: BEVACIZUMAB
     Indication: NEOPLASM MALIGNANT
     Route: 042
     Dates: start: 20100415
  6. ZOFRAN [Concomitant]
     Active Substance: ONDANSETRON HYDROCHLORIDE
  7. AVASTIN [Suspect]
     Active Substance: BEVACIZUMAB
     Indication: NEOPLASM MALIGNANT
     Dosage: THERAPY DATES: 28/APR/2010, 12/MAY/2010 AND 26/MAY/2010
     Route: 042
     Dates: start: 20100320

REACTIONS (2)
  - Disease progression [Fatal]
  - Nausea [Unknown]
